FAERS Safety Report 25227144 (Version 1)
Quarter: 2025Q2

REPORT INFORMATION
  Report Type: Spontaneous
  Country: CN (occurrence: CN)
  Receive Date: 20250422
  Receipt Date: 20250422
  Transmission Date: 20250716
  Serious: Yes (Hospitalization)
  Sender: NOVARTIS
  Company Number: CN-002147023-NVSC2025CN063804

PATIENT
  Age: 31 Year
  Sex: Female

DRUGS (7)
  1. CYCLOSPORINE [Suspect]
     Active Substance: CYCLOSPORINE
     Indication: Immune thrombocytopenia
     Dosage: 50 MG, BID
     Route: 048
     Dates: start: 20230704, end: 202307
  2. RAFUTROMBOPAG [Suspect]
     Active Substance: RAFUTROMBOPAG
     Indication: Immune thrombocytopenia
     Dosage: 2.5 MG, QD
     Route: 065
     Dates: start: 20230704, end: 202307
  3. METHYLPREDNISOLONE [Concomitant]
     Active Substance: METHYLPREDNISOLONE
     Indication: Immune thrombocytopenia
     Dosage: 40 MG, QD
     Route: 065
     Dates: start: 202306, end: 2023
  4. METHYLPREDNISOLONE [Concomitant]
     Active Substance: METHYLPREDNISOLONE
     Dosage: 200 MG, QD
     Route: 065
     Dates: start: 202307, end: 2023
  5. MAGNESIUM ISOGLYCYRRHIZINATE [Concomitant]
     Active Substance: MAGNESIUM ISOGLYCYRRHIZINATE
     Indication: Prophylaxis
     Dosage: 200 MG, QD
     Route: 065
     Dates: start: 2023
  6. GLUTATHIONE [Concomitant]
     Active Substance: GLUTATHIONE
     Indication: Prophylaxis
     Dosage: 200 MG, QD
     Route: 065
     Dates: start: 2023
  7. OPRELVEKIN [Concomitant]
     Active Substance: OPRELVEKIN
     Indication: Immune thrombocytopenia
     Route: 065
     Dates: start: 202307

REACTIONS (2)
  - Drug-induced liver injury [Recovered/Resolved]
  - Off label use [Unknown]

NARRATIVE: CASE EVENT DATE: 20230707
